FAERS Safety Report 24580161 (Version 1)
Quarter: 2024Q4

REPORT INFORMATION
  Report Type: Spontaneous
  Country: US (occurrence: US)
  Receive Date: 20241105
  Receipt Date: 20241105
  Transmission Date: 20250115
  Serious: Yes (Other)
  Sender: BAYER HEALTHCARE LLC
  Company Number: US-BAYER-2024A157095

PATIENT
  Age: 61 Year
  Sex: Female

DRUGS (2)
  1. ASPIRIN [Suspect]
     Active Substance: ASPIRIN
     Dosage: UNK
  2. WARFARIN [Interacting]
     Active Substance: WARFARIN

REACTIONS (2)
  - Cerebral haemorrhage [None]
  - Haemorrhagic stroke [None]
